FAERS Safety Report 9928901 (Version 1)
Quarter: 2014Q1

REPORT INFORMATION
  Report Type: Spontaneous
  Country: ES (occurrence: None)
  Receive Date: 20140221
  Receipt Date: 20140221
  Transmission Date: 20141002
  Serious: Yes (Death, Hospitalization)
  Sender: FDA-Public Use
  Company Number: DSM-2014-00159

PATIENT
  Age: 82 Year
  Sex: Female

DRUGS (6)
  1. AMLODIPINE AND OLMESARTAN MEDOXOMIL [Suspect]
     Indication: HYPERTENSION
     Route: 048
     Dates: end: 20130326
  2. SEGURIL [Suspect]
     Indication: HYPERTENSION
     Route: 048
  3. BISOPROLOL(BISOPROLOL)(5 MILLIGRAM)(BISOPROLOL) [Concomitant]
  4. SIMVASTATIN(SIMVASTATIN)(20 MILLIGRAM)(SIMVASTATIN) [Concomitant]
  5. BOI-K(ASPARTIC ACID, POTASSIUM ASCORBATE)(ASPARTIC ACID, POTASSIUM ASCORBATE) [Concomitant]
  6. ZYLORIC(ALLOPURINOL)(ALLOPURINOL) [Concomitant]

REACTIONS (9)
  - Renal failure acute [None]
  - Drug interaction [None]
  - Dyspnoea at rest [None]
  - Cough [None]
  - Asthenia [None]
  - Decreased appetite [None]
  - Hypoventilation [None]
  - Respiratory failure [None]
  - Cardiac failure [None]
